FAERS Safety Report 20393144 (Version 2)
Quarter: 2022Q1

REPORT INFORMATION
  Report Type: Spontaneous
  Country: AU (occurrence: AU)
  Receive Date: 20220128
  Receipt Date: 20220216
  Transmission Date: 20220423
  Serious: Yes (Hospitalization)
  Sender: FDA-Public Use
  Company Number: AU-ALLERGAN-2203239US

PATIENT
  Sex: Male

DRUGS (1)
  1. UNSPECIFIED INGREDIENT [Suspect]
     Active Substance: UNSPECIFIED INGREDIENT
     Indication: Immune thrombocytopenia

REACTIONS (4)
  - Immune thrombocytopenia [Unknown]
  - Disease recurrence [Unknown]
  - Platelet count decreased [Unknown]
  - Off label use [Unknown]
